FAERS Safety Report 6574228-9 (Version None)
Quarter: 2010Q1

REPORT INFORMATION
  Report Type: 
  Country: None (occurrence: None)
  Receive Date: 20100208
  Receipt Date: 20100129
  Transmission Date: 20100710
  Serious: Yes (Other)
  Sender: FDA-Public Use
  Company Number: US-PFIZER INC-2010014297

PATIENT
  Sex: Female
  Weight: 65.306 kg

DRUGS (4)
  1. LIPITOR [Suspect]
     Indication: BLOOD CHOLESTEROL INCREASED
     Dosage: 10 MG, 1X/DAY
     Route: 048
     Dates: start: 20090101
  2. LISINOPRIL [Concomitant]
     Dosage: FREQUENCY: 2X/DAY,
  3. FUROSEMIDE [Concomitant]
     Dosage: 200 MG, 1X/DAY
  4. PREVACID [Concomitant]
     Dosage: 15 MG, 1X/DAY

REACTIONS (5)
  - ARTHRALGIA [None]
  - DIARRHOEA [None]
  - MUSCLE DISORDER [None]
  - MYALGIA [None]
  - NASAL CAVITY CANCER [None]
